FAERS Safety Report 25508247 (Version 1)
Quarter: 2025Q3

REPORT INFORMATION
  Report Type: Spontaneous
  Country: CN (occurrence: CN)
  Receive Date: 20250703
  Receipt Date: 20250703
  Transmission Date: 20251020
  Serious: Yes (Hospitalization)
  Sender: CHEPLAPHARM
  Company Number: CN-CHEPLA-2025007943

PATIENT
  Age: 61 Year
  Sex: Female
  Weight: 60 kg

DRUGS (2)
  1. CAPECITABINE [Suspect]
     Active Substance: CAPECITABINE
     Indication: Breast cancer
     Route: 048
     Dates: start: 20241001, end: 20250616
  2. PYROTINIB MALEATE [Suspect]
     Active Substance: PYROTINIB MALEATE
     Indication: Breast cancer
     Dosage: APPROVAL NO. GYZZ H20180013. PYRROLITINIB MALEATE 400MG QD 2 YEARS AGO?DAILY DOSE: 400 MILLIGRAM
     Route: 048
     Dates: start: 20231201, end: 20250616

REACTIONS (1)
  - Pyogenic granuloma [Unknown]

NARRATIVE: CASE EVENT DATE: 20250616
